FAERS Safety Report 12194479 (Version 1)
Quarter: 2016Q1

REPORT INFORMATION
  Report Type: Spontaneous
  Country: US (occurrence: US)
  Receive Date: 20160321
  Receipt Date: 20160321
  Transmission Date: 20160526
  Serious: Yes (Other)
  Sender: FDA-Public Use
  Company Number: US-TEVA-640573USA

PATIENT
  Sex: Male

DRUGS (1)
  1. QVAR [Suspect]
     Active Substance: BECLOMETHASONE DIPROPIONATE
     Indication: ASTHMA
     Dosage: 2 PUFFS IN THE MORNING AND EVENING
     Route: 065
     Dates: start: 201602

REACTIONS (3)
  - Lower respiratory tract infection [Unknown]
  - Asthma [Unknown]
  - Productive cough [Unknown]

NARRATIVE: CASE EVENT DATE: 201602
